FAERS Safety Report 18931787 (Version 1)
Quarter: 2021Q1

REPORT INFORMATION
  Report Type: Spontaneous
  Country: US (occurrence: US)
  Receive Date: 20210223
  Receipt Date: 20210223
  Transmission Date: 20210420
  Serious: No
  Sender: FDA-Public Use
  Company Number: US-IGSA-BIG0011490

PATIENT
  Age: 37 Year
  Sex: Male
  Weight: 106 kg

DRUGS (13)
  1. MEDROL [Concomitant]
     Active Substance: METHYLPREDNISOLONE
  2. ASMANEX [Concomitant]
     Active Substance: MOMETASONE FUROATE
     Dosage: 120 UNK
  3. PAXIL [Concomitant]
     Active Substance: PAROXETINE HYDROCHLORIDE
  4. CEFDINIR. [Concomitant]
     Active Substance: CEFDINIR
  5. PROLASTIN?C LIQUID [Suspect]
     Active Substance: .ALPHA.1-PROTEINASE INHIBITOR HUMAN
     Indication: ALPHA-1 ANTITRYPSIN DEFICIENCY
     Dosage: 6360 MILLIGRAM, Q.WK.
     Route: 042
     Dates: start: 20200924, end: 20200924
  6. FLONASE                            /00908302/ [Concomitant]
     Active Substance: MOMETASONE FUROATE
     Dosage: UNK
  7. HYDROCHLOROTHIAZIDE. [Concomitant]
     Active Substance: HYDROCHLOROTHIAZIDE
  8. ALBUTEROL SULFATE. [Concomitant]
     Active Substance: ALBUTEROL SULFATE
     Dosage: UNK
  9. DIOVAN [Concomitant]
     Active Substance: VALSARTAN
     Dosage: UNK
  10. PROAIR HFA [Concomitant]
     Active Substance: ALBUTEROL SULFATE
     Dosage: UNK
  11. SINGULAIR [Concomitant]
     Active Substance: MONTELUKAST SODIUM
  12. PEPCID                             /00305201/ [Concomitant]
     Active Substance: ALUMINUM HYDROXIDE\MAGNESIUM CARBONATE
  13. PROLASTIN?C LIQUID [Suspect]
     Active Substance: .ALPHA.1-PROTEINASE INHIBITOR HUMAN
     Dosage: 6360 MILLIGRAM, Q.WK.
     Route: 042
     Dates: start: 20180801

REACTIONS (9)
  - Dyspnoea [Recovered/Resolved]
  - Throat tightness [Recovered/Resolved]
  - Nausea [Recovered/Resolved]
  - Choking [Recovered/Resolved]
  - Feeling abnormal [Recovered/Resolved]
  - Dizziness [Recovered/Resolved]
  - Chest pain [Recovered/Resolved]
  - Vomiting [Recovered/Resolved]
  - Wheezing [Recovered/Resolved]

NARRATIVE: CASE EVENT DATE: 20200924
